FAERS Safety Report 20517891 (Version 1)
Quarter: 2022Q1

REPORT INFORMATION
  Report Type: Spontaneous
  Country: US (occurrence: None)
  Receive Date: 20220224
  Receipt Date: 20220224
  Transmission Date: 20220423
  Serious: Yes (Hospitalization)
  Sender: FDA-Public Use
  Company Number: None

PATIENT
  Age: 49 Year
  Sex: Female
  Weight: 93.5 kg

DRUGS (21)
  1. LISOCABTAGENE MARALEUCEL [Suspect]
     Active Substance: LISOCABTAGENE MARALEUCEL
     Indication: Diffuse large B-cell lymphoma
     Dosage: OTHER FREQUENCY : ONCE;?
     Route: 042
     Dates: start: 20220221, end: 20220221
  2. Acetaminophen 650mg Q4 hours and 1000mg Q6 PRN [Concomitant]
  3. Melatonin 3mg QD PRN [Concomitant]
  4. Allopurinol 300 mg QD [Concomitant]
  5. Bisacodyl rectal suppository 10 mg [Concomitant]
  6. Capsaicin 0.075% cream TID PRN [Concomitant]
  7. Cefapime HCL 2g [Concomitant]
  8. Duloxetine HCL QD [Concomitant]
  9. Fluconazol 400mg QD [Concomitant]
  10. Levetiracetam 500mg BID [Concomitant]
  11. Magnesium Hydroxide 30ml QD [Concomitant]
  12. Magnesium Sulfate 2g QD [Concomitant]
  13. Ondansetron HCL 4mg Q6 and 8mg Q8 PRN [Concomitant]
  14. Potassium Chloride 40 mEQ QD PRN [Concomitant]
  15. Prochlorperazine Edisylate 10 mg Q6 PRN [Concomitant]
  16. Prochlorperazine Maleate 10mg Q6 PRN [Concomitant]
  17. Sennosides Ducoaste Sodium 8.6-50mg BID PRN [Concomitant]
  18. Sodium Chloride 0.9% infusion PRN [Concomitant]
  19. Tocilizumab 736mg once [Concomitant]
  20. Vancomycin HCL 1.25g Q12 hours [Concomitant]
  21. Vancomycin HCL 2g Q12 hours [Concomitant]

REACTIONS (4)
  - Chills [None]
  - Pyrexia [None]
  - Lung infiltration [None]
  - Cytokine release syndrome [None]

NARRATIVE: CASE EVENT DATE: 20220221
